FAERS Safety Report 9026309 (Version 1)
Quarter: 2012Q4

REPORT INFORMATION
  Report Type: Spontaneous
  Country: NL (occurrence: None)
  Receive Date: 20121211
  Receipt Date: 20121211
  Transmission Date: 20130627
  Serious: Yes (Hospitalization)
  Sender: FDA-Public Use
  Company Number: DSA_61293_2012

PATIENT
  Age: 62 Year
  Sex: Female

DRUGS (8)
  1. 5-FU [Suspect]
     Indication: COLORECTAL CANCER METASTATIC
     Dates: start: 20121112, end: 20121112
  2. AFLIBERCEPT [Suspect]
     Indication: COLORECTAL CANCER METASTATIC
     Dates: start: 20121112, end: 20121112
  3. IRINOTECAN [Suspect]
  4. IRINOTECAN [Suspect]
     Indication: COLORECTAL CANCER METASTATIC
     Dates: start: 20121112, end: 20121112
  5. LEUCOVORIN [Suspect]
     Indication: COLORECTAL CANCER METASTATIC
     Dates: start: 20121112, end: 20121112
  6. HYDROCHLOROTHIAZIDE [Concomitant]
  7. CRESTOR [Concomitant]
  8. LORAZEPAM [Concomitant]

REACTIONS (1)
  - Diverticulitis [None]
